FAERS Safety Report 20673614 (Version 2)
Quarter: 2022Q3

REPORT INFORMATION
  Report Type: Spontaneous
  Country: JP (occurrence: JP)
  Receive Date: 20220405
  Receipt Date: 20220715
  Transmission Date: 20221026
  Serious: Yes (Hospitalization)
  Sender: FDA-Public Use
  Company Number: JP-GLAXOSMITHKLINE-JP2022JPN058175

PATIENT

DRUGS (20)
  1. BENLYSTA [Suspect]
     Active Substance: BELIMUMAB
     Indication: Systemic lupus erythematosus
     Dosage: 200 MG, WE
     Route: 058
     Dates: start: 20181220, end: 20190530
  2. BENLYSTA [Suspect]
     Active Substance: BELIMUMAB
     Dosage: 200 MG, WE
     Route: 058
     Dates: start: 20190606, end: 20191218
  3. BETAMETHASONE [Concomitant]
     Active Substance: BETAMETHASONE
     Indication: Systemic lupus erythematosus
     Dosage: 2.5 MG, 1D
     Route: 048
     Dates: start: 20181220, end: 20190110
  4. BETAMETHASONE [Concomitant]
     Active Substance: BETAMETHASONE
     Dosage: 2.0 MG, 1D
     Route: 048
     Dates: start: 20190111, end: 20190130
  5. BETAMETHASONE [Concomitant]
     Active Substance: BETAMETHASONE
     Dosage: 1.75 MG, 1D
     Route: 048
     Dates: start: 20190131, end: 20190220
  6. BETAMETHASONE [Concomitant]
     Active Substance: BETAMETHASONE
     Dosage: 1.25 MG, 1D
     Route: 048
     Dates: start: 20190221, end: 20190306
  7. BETAMETHASONE [Concomitant]
     Active Substance: BETAMETHASONE
     Dosage: 1.0 MG, 1D
     Route: 048
     Dates: start: 20190307, end: 20190403
  8. BETAMETHASONE [Concomitant]
     Active Substance: BETAMETHASONE
     Dosage: 0.9 MG, 1D
     Route: 048
     Dates: start: 20190404, end: 20190508
  9. BETAMETHASONE [Concomitant]
     Active Substance: BETAMETHASONE
     Dosage: 0.8 MG, 1D
     Route: 048
     Dates: start: 20190509, end: 20190703
  10. BETAMETHASONE [Concomitant]
     Active Substance: BETAMETHASONE
     Dosage: 0.7 MG, 1D
     Route: 048
     Dates: start: 20190704, end: 20190828
  11. BETAMETHASONE [Concomitant]
     Active Substance: BETAMETHASONE
     Dosage: 0.6 MG, 1D
     Route: 048
     Dates: start: 20190829, end: 20191023
  12. BETAMETHASONE [Concomitant]
     Active Substance: BETAMETHASONE
     Dosage: 0.5 MG, 1D
     Route: 048
     Dates: start: 20191024
  13. PLAQUENIL [Concomitant]
     Active Substance: HYDROXYCHLOROQUINE SULFATE
     Indication: Systemic lupus erythematosus
  14. SULFAMETHOXAZOLE\TRIMETHOPRIM [Concomitant]
     Active Substance: SULFAMETHOXAZOLE\TRIMETHOPRIM
     Indication: Antifungal prophylaxis
  15. VONOPRAZAN FUMARATE [Concomitant]
     Active Substance: VONOPRAZAN FUMARATE
     Indication: Prophylaxis against gastrointestinal ulcer
  16. ELDECALCITOL [Concomitant]
     Active Substance: ELDECALCITOL
     Indication: Osteoporosis prophylaxis
  17. ALENDRONATE SODIUM [Concomitant]
     Active Substance: ALENDRONATE SODIUM
     Indication: Osteoporosis prophylaxis
  18. BELSOMRA [Concomitant]
     Active Substance: SUVOREXANT
  19. ASPIRIN [Concomitant]
     Active Substance: ASPIRIN
     Indication: Carotid artery stenosis
  20. PRAVASTATIN SODIUM [Concomitant]
     Active Substance: PRAVASTATIN SODIUM
     Indication: Dyslipidaemia

REACTIONS (1)
  - Headache [Recovering/Resolving]

NARRATIVE: CASE EVENT DATE: 20200221
